FAERS Safety Report 6304690-8 (Version None)
Quarter: 2009Q3

REPORT INFORMATION
  Report Type: 
  Country: None (occurrence: None)
  Receive Date: 20090811
  Receipt Date: 20090401
  Transmission Date: 20100115
  Serious: Yes (Hospitalization)
  Sender: FDA-Public Use
  Company Number: PHHO2008DE15195

PATIENT
  Sex: Male
  Weight: 86.3 kg

DRUGS (2)
  1. RAD 666 RAD+TAB [Suspect]
     Indication: LIVER TRANSPLANT
     Dosage: 5.5 MG
     Route: 048
     Dates: start: 20081010
  2. SANDIMMUNE [Suspect]
     Dosage: 170 MG
     Dates: start: 20081024

REACTIONS (3)
  - BIOPSY LIVER [None]
  - HEPATIC ENZYME INCREASED [None]
  - HEPATIC STEATOSIS [None]
